FAERS Safety Report 15584768 (Version 1)
Quarter: 2018Q4

REPORT INFORMATION
  Report Type: Spontaneous
  Country: US (occurrence: US)
  Receive Date: 20181105
  Receipt Date: 20181105
  Transmission Date: 20190205
  Serious: Yes (Hospitalization)
  Sender: FDA-Public Use
  Company Number: None

PATIENT
  Age: 66 Year
  Sex: Female
  Weight: 78.5 kg

DRUGS (2)
  1. RUCAPARIB [Suspect]
     Active Substance: RUCAPARIB
     Indication: ENDOMETRIAL CANCER
     Route: 048
     Dates: start: 20180912, end: 20181105
  2. NIVOLUMAB [Suspect]
     Active Substance: NIVOLUMAB
     Indication: ENDOMETRIAL CANCER
     Dosage: ?          OTHER FREQUENCY:EVERY 28 DAYS;?
     Route: 042
     Dates: start: 20180912, end: 20181010

REACTIONS (8)
  - Metastatic neoplasm [None]
  - Abdominal distension [None]
  - Ascites [None]
  - Vomiting [None]
  - Abdominal pain [None]
  - Diverticulitis [None]
  - Nausea [None]
  - Pleural effusion [None]

NARRATIVE: CASE EVENT DATE: 20181104
